FAERS Safety Report 8967934 (Version 1)
Quarter: 2012Q4

REPORT INFORMATION
  Report Type: 
  Country: IT (occurrence: IT)
  Receive Date: 20121217
  Receipt Date: 20121217
  Transmission Date: 20130627
  Serious: Yes (Hospitalization)
  Sender: FDA-Public Use
  Company Number: IT-BAXTER-2012BAX026758

PATIENT
  Sex: Male

DRUGS (10)
  1. GLUCOSIO [Suspect]
     Indication: TOTAL PARENTERAL NUTRITION
  2. ACQUA [Suspect]
     Indication: TOTAL PARENTERAL NUTRITION
  3. CLINOLEIC 20% [Suspect]
     Indication: TOTAL PARENTERAL NUTRITION
  4. CLINOLEIC 20% [Suspect]
  5. SYNTHAMIN [Suspect]
     Indication: TOTAL PARENTERAL NUTRITION
     Route: 065
  6. POTASSIUM ACETATE [Suspect]
     Indication: TOTAL PARENTERAL NUTRITION
     Route: 065
  7. ZINC SULFATE [Suspect]
     Indication: TOTAL PARENTERAL NUTRITION
     Route: 065
  8. SODIUM SELENITE [Suspect]
     Indication: TOTAL PARENTERAL NUTRITION
     Dosage: 10 MCG/ML
     Route: 065
  9. MAGNESIUM SULFATE [Suspect]
     Indication: TOTAL PARENTERAL NUTRITION
     Route: 065
  10. CALCIUM GLUCONATE [Suspect]
     Indication: TOTAL PARENTERAL NUTRITION
     Route: 065

REACTIONS (2)
  - Device related infection [Unknown]
  - Product compounding quality issue [Unknown]
